FAERS Safety Report 25515557 (Version 1)
Quarter: 2025Q3

REPORT INFORMATION
  Report Type: Spontaneous
  Country: US (occurrence: US)
  Receive Date: 20250704
  Receipt Date: 20250704
  Transmission Date: 20251020
  Serious: No
  Sender: ROCHE
  Company Number: US-ROCHE-10000323339

PATIENT
  Age: 37 Year
  Sex: Female

DRUGS (3)
  1. OCREVUS [Suspect]
     Active Substance: OCRELIZUMAB
     Indication: Relapsing-remitting multiple sclerosis
     Dosage: NEXT DOSE ON 24/JUN/2025 300 MG??TOTAL DOSE 600 MG INCLUDING BOTH DOSE
     Route: 042
     Dates: start: 20250611
  2. BENADRYL [Concomitant]
     Active Substance: DIPHENHYDRAMINE HYDROCHLORIDE
     Dosage: BEFORE EVERY DOSE
     Route: 042
     Dates: start: 20250611
  3. ACETAMINOPHEN [Concomitant]
     Active Substance: ACETAMINOPHEN
     Indication: Premedication
     Dosage: BEFORE EVERY DOSE
     Route: 048
     Dates: start: 20250611

REACTIONS (4)
  - Ear pruritus [Recovered/Resolved]
  - Pharyngeal swelling [Recovered/Resolved]
  - Nasal pruritus [Recovered/Resolved]
  - Throat irritation [Recovered/Resolved]

NARRATIVE: CASE EVENT DATE: 20250611
